FAERS Safety Report 9195874 (Version 1)
Quarter: 2013Q1

REPORT INFORMATION
  Report Type: Spontaneous
  Country: US (occurrence: US)
  Receive Date: 20130328
  Receipt Date: 20130328
  Transmission Date: 20140127
  Serious: Yes (Other)
  Sender: FDA-Public Use
  Company Number: US-JNJFOC-20130200306

PATIENT
  Age: 16 Year
  Sex: Male
  Weight: 93.5 kg

DRUGS (8)
  1. REMICADE [Suspect]
     Indication: CROHN^S DISEASE
     Route: 042
     Dates: start: 20110805
  2. REMICADE [Suspect]
     Indication: CROHN^S DISEASE
     Dosage: CONFLICTINGLY ALSO REPORTED AS 30-JAN-2013
     Route: 042
     Dates: start: 20130129
  3. VALACYCLOVIR [Concomitant]
     Route: 065
  4. FERREX [Concomitant]
     Dosage: 150 (FORTE)
     Route: 065
  5. MULTIVITAMINS [Concomitant]
     Route: 065
  6. CALCIUM [Concomitant]
     Route: 065
  7. VITAMIN K [Concomitant]
     Route: 065
  8. VITAMIN D [Concomitant]
     Route: 065

REACTIONS (3)
  - Drug hypersensitivity [Recovered/Resolved]
  - Drug specific antibody present [Unknown]
  - Infusion related reaction [Recovered/Resolved]
